FAERS Safety Report 4804906-0 (Version None)
Quarter: 2005Q4

REPORT INFORMATION
  Report Type: 
  Country: None (occurrence: None)
  Receive Date: 20051017
  Receipt Date: 20050916
  Transmission Date: 20060501
  Serious: Yes (Other)
  Sender: FDA-Public Use
  Company Number: 2005VX000528

PATIENT
  Age: 59 Year
  Sex: Female

DRUGS (6)
  1. TASMAR [Suspect]
     Indication: PARKINSON'S DISEASE
     Dosage: 100 MG; 3 TIMES A DAY;
     Dates: start: 20050629, end: 20050909
  2. MADOPAR [Concomitant]
  3. AMANTADINE HCL [Concomitant]
  4. PERIBEDIL [Concomitant]
  5. SELEGILINE HCL [Concomitant]
  6. CLONAZEPAM [Concomitant]

REACTIONS (2)
  - ALANINE AMINOTRANSFERASE INCREASED [None]
  - ASPARTATE AMINOTRANSFERASE INCREASED [None]
